FAERS Safety Report 7860057-2 (Version None)
Quarter: 2011Q4

REPORT INFORMATION
  Report Type: 
  Country: None (occurrence: None)
  Receive Date: 20111025
  Receipt Date: 20111013
  Transmission Date: 20120403
  Serious: Yes (Hospitalization)
  Sender: FDA-Public Use
  Company Number: 2011SP048414

PATIENT
  Age: 47 Year
  Sex: Male
  Weight: 56 kg

DRUGS (6)
  1. BOCEPREVIR (SCH-503034) [Suspect]
     Indication: HEPATITIS C
     Dosage: 800 MG;TID;PO
     Route: 048
     Dates: start: 20110801
  2. BOCEPREVIR (SCH-503034) [Suspect]
     Indication: HEPATIC CIRRHOSIS
     Dosage: 800 MG;TID;PO
     Route: 048
     Dates: start: 20110801
  3. PEG-INTRON [Suspect]
     Indication: HEPATIC CIRRHOSIS
     Dosage: 100 MCG;QW;ID
     Dates: start: 20110722
  4. PEG-INTRON [Suspect]
     Indication: HEPATITIS C
     Dosage: 100 MCG;QW;ID
     Dates: start: 20110722
  5. REBETOL [Suspect]
     Indication: HEPATITIS C
     Dosage: 1000 MG;QD;
     Dates: start: 20110722
  6. REBETOL [Suspect]
     Indication: HEPATIC CIRRHOSIS
     Dosage: 1000 MG;QD;
     Dates: start: 20110722

REACTIONS (3)
  - PYREXIA [None]
  - WHITE BLOOD CELL COUNT DECREASED [None]
  - NEUTROPENIA [None]
